FAERS Safety Report 4448277-0 (Version None)
Quarter: 2004Q3

REPORT INFORMATION
  Report Type: 
  Country: None (occurrence: None)
  Receive Date: 20040913
  Receipt Date: 20040907
  Transmission Date: 20050211
  Serious: Yes (Hospitalization)
  Sender: FDA-Public Use
  Company Number: GB-MERCK-0409GBR00079

PATIENT
  Age: 43 Year
  Sex: Female

DRUGS (8)
  1. ASPIRIN [Concomitant]
     Route: 048
  2. ATENOLOL [Concomitant]
     Route: 048
  3. CIMETIDINE [Concomitant]
     Route: 048
  4. GLICLAZIDE [Concomitant]
     Route: 048
  5. METFORMIN [Concomitant]
     Route: 048
  6. VIOXX [Suspect]
     Indication: MUSCULOSKELETAL PAIN
     Route: 048
     Dates: start: 20040816
  7. VIOXX [Suspect]
     Route: 048
     Dates: start: 20040701, end: 20040815
  8. SIMVASTATIN [Concomitant]
     Route: 048

REACTIONS (2)
  - LEFT VENTRICULAR FAILURE [None]
  - PULMONARY OEDEMA [None]
